FAERS Safety Report 7396828-9 (Version None)
Quarter: 2011Q2

REPORT INFORMATION
  Report Type: 
  Country: None (occurrence: None)
  Receive Date: 20110406
  Receipt Date: 20110328
  Transmission Date: 20111010
  Serious: Yes (Other)
  Sender: FDA-Public Use
  Company Number: US-AMGEN-USASP2011016691

PATIENT
  Age: 51 Year
  Sex: Female

DRUGS (2)
  1. ENBREL [Suspect]
     Indication: PSORIATIC ARTHROPATHY
     Dosage: 50 MG, 2 TIMES/WK
     Dates: start: 20020101
  2. ENBREL [Suspect]
     Indication: PSORIASIS

REACTIONS (7)
  - WHEEZING [None]
  - SINUSITIS [None]
  - CHEST PAIN [None]
  - LACERATION [None]
  - DYSPNOEA [None]
  - COUGH [None]
  - INJECTION SITE PAIN [None]
